FAERS Safety Report 19864569 (Version 6)
Quarter: 2022Q2

REPORT INFORMATION
  Report Type: Report from Study
  Country: GB (occurrence: GB)
  Receive Date: 20210921
  Receipt Date: 20220630
  Transmission Date: 20220721
  Serious: Yes (Hospitalization, Other)
  Sender: FDA-Public Use
  Company Number: GB-ROCHE-2532220

PATIENT
  Age: 76 Year
  Sex: Male
  Weight: 81.1 kg

DRUGS (60)
  1. PACLITAXEL [Suspect]
     Active Substance: PACLITAXEL
     Indication: Non-small cell lung cancer
     Dosage: 420 MILLIGRAM
     Route: 065
     Dates: start: 20191216
  2. CARBOPLATIN [Suspect]
     Active Substance: CARBOPLATIN
     Indication: Non-small cell lung cancer
     Dosage: 630 MILLIGRAM
     Route: 065
     Dates: start: 20191216
  3. BEVACIZUMAB [Suspect]
     Active Substance: BEVACIZUMAB
     Indication: Non-small cell lung cancer
     Dosage: 1200 MILLIGRAM
     Route: 065
     Dates: start: 20191216
  4. ATEZOLIZUMAB [Suspect]
     Active Substance: ATEZOLIZUMAB
     Indication: Non-small cell lung cancer
     Dosage: 1200 MILLIGRAM, Q3W (RECEIVED SAME DOSE OF ATEZOLIZUMAB INFUSION ON 10/FEB/2020, 02/MAR/2020
     Route: 041
     Dates: start: 20191216
  5. PANTOPRAZOLE [Concomitant]
     Active Substance: PANTOPRAZOLE
     Indication: Dyspnoea
     Dosage: UNK UNK, BID (0.5/DAY)
     Route: 065
     Dates: start: 20181201
  6. PANTOPRAZOLE [Concomitant]
     Active Substance: PANTOPRAZOLE
     Dosage: UNK UNK, QD
     Route: 065
     Dates: start: 20200519, end: 20200528
  7. CHLOROFORM\CODEINE PHOSPHATE\DRIMIA MARITIMA BULB [Concomitant]
     Active Substance: CHLOROFORM\CODEINE PHOSPHATE\DRIMIA MARITIMA BULB
     Indication: Cough
     Dosage: UNK
     Route: 065
     Dates: start: 20191001
  8. CHLOROFORM\CODEINE PHOSPHATE\DRIMIA MARITIMA BULB [Concomitant]
     Active Substance: CHLOROFORM\CODEINE PHOSPHATE\DRIMIA MARITIMA BULB
     Dosage: UNK
     Route: 065
     Dates: start: 20200526, end: 20200529
  9. CHLOROFORM\CODEINE PHOSPHATE\DRIMIA MARITIMA BULB [Concomitant]
     Active Substance: CHLOROFORM\CODEINE PHOSPHATE\DRIMIA MARITIMA BULB
     Dosage: UNK UNK, QD
     Route: 065
     Dates: start: 20200607, end: 20200607
  10. CHOLECALCIFEROL [Concomitant]
     Active Substance: CHOLECALCIFEROL
     Indication: Fatigue
     Dosage: UNK UNK, QD
     Route: 065
     Dates: start: 20191213
  11. IMODIUM [Concomitant]
     Active Substance: LOPERAMIDE HYDROCHLORIDE
     Indication: Diarrhoea
     Dosage: UNK (START DATE: 18-MAR-2020)
     Route: 065
  12. COTRIMOXAZOLE [Concomitant]
     Active Substance: SULFAMETHOXAZOLE\TRIMETHOPRIM
     Indication: Prophylaxis
     Dosage: UNK
     Route: 065
  13. COTRIMOXAZOLE [Concomitant]
     Active Substance: SULFAMETHOXAZOLE\TRIMETHOPRIM
     Dosage: UNK, QD
     Route: 065
     Dates: start: 20200518, end: 20200520
  14. COTRIMOXAZOLE [Concomitant]
     Active Substance: SULFAMETHOXAZOLE\TRIMETHOPRIM
     Dosage: UNK, TID
     Route: 065
     Dates: start: 20200521, end: 20200605
  15. BUTYLSCOPOLAMINE BROMIDE [Concomitant]
     Active Substance: BUTYLSCOPOLAMINE BROMIDE
     Indication: Abdominal pain
     Dosage: UNK (START DATE: 05-MAR-2020)
     Route: 065
  16. ACETAMINOPHEN [Concomitant]
     Active Substance: ACETAMINOPHEN
     Indication: Headache
     Dosage: UNK (START DATE: 19-MAR-2020)
     Route: 065
  17. ACETAMINOPHEN [Concomitant]
     Active Substance: ACETAMINOPHEN
     Indication: Abdominal pain
     Dosage: UNK UNK, QID (0.25 DAY)
     Route: 065
     Dates: start: 20200518, end: 20200608
  18. ACETAMINOPHEN [Concomitant]
     Active Substance: ACETAMINOPHEN
     Indication: Chest pain
  19. PREDNISOLONE [Concomitant]
     Active Substance: PREDNISOLONE
     Indication: Dyspnoea
     Dosage: UNK
     Route: 065
     Dates: start: 20190701
  20. PREDNISOLONE [Concomitant]
     Active Substance: PREDNISOLONE
     Dosage: UNK
     Route: 065
     Dates: start: 20200414
  21. PREDNISOLONE [Concomitant]
     Active Substance: PREDNISOLONE
     Dosage: UNK UNK, QD
     Route: 065
     Dates: start: 20200518, end: 20200528
  22. POLYETHYLENE GLYCOL 3350\POTASSIUM CHLORIDE\SODIUM BICARBONATE\SODIUM [Concomitant]
     Active Substance: POLYETHYLENE GLYCOL 3350\POTASSIUM CHLORIDE\SODIUM BICARBONATE\SODIUM CHLORIDE
     Indication: Constipation
     Dosage: UNK UNK, QD
     Route: 065
     Dates: start: 20190201
  23. POLYETHYLENE GLYCOL 3350\POTASSIUM CHLORIDE\SODIUM BICARBONATE\SODIUM [Concomitant]
     Active Substance: POLYETHYLENE GLYCOL 3350\POTASSIUM CHLORIDE\SODIUM BICARBONATE\SODIUM CHLORIDE
     Dosage: UNK
     Route: 065
     Dates: start: 20200528, end: 20200528
  24. POLYETHYLENE GLYCOL 3350\POTASSIUM CHLORIDE\SODIUM BICARBONATE\SODIUM [Concomitant]
     Active Substance: POLYETHYLENE GLYCOL 3350\POTASSIUM CHLORIDE\SODIUM BICARBONATE\SODIUM CHLORIDE
     Dosage: UNK
     Route: 065
     Dates: start: 20200529, end: 20200608
  25. GLUCOSAMINE [Concomitant]
     Active Substance: GLUCOSAMINE
     Indication: Fatigue
     Dosage: UNK, BID (0.5/DAY)
     Route: 065
  26. BECLOMETHASONE [Concomitant]
     Active Substance: BECLOMETHASONE
     Dosage: UNK UNK, BID (0.5 DAY)(START DATE: 20-MAY-2020)
     Route: 065
     Dates: end: 20200608
  27. METHYLPREDNISOLONE [Concomitant]
     Active Substance: METHYLPREDNISOLONE
     Dosage: UNK UNK, QD (START DATE: 18-MAY-2020)
     Route: 065
     Dates: end: 20200518
  28. METHYLPREDNISOLONE [Concomitant]
     Active Substance: METHYLPREDNISOLONE
     Dosage: UNK UNK, QD
     Route: 065
     Dates: start: 20200519
  29. CALCIUM\CHOLECALCIFEROL [Concomitant]
     Active Substance: CALCIUM\CHOLECALCIFEROL
     Dosage: UNK, QD (START DATE: 20-MAY-2020)
     Route: 065
     Dates: end: 20200608
  30. SALINE [Concomitant]
     Active Substance: SODIUM CHLORIDE
     Indication: Prophylaxis
     Dosage: UNK (START DATE: 18-MAY-2020)
     Route: 065
     Dates: end: 20200518
  31. SALINE [Concomitant]
     Active Substance: SODIUM CHLORIDE
     Dosage: UNK
     Route: 065
     Dates: start: 20200527, end: 20200601
  32. AMOXICILLIN\CLAVULANATE POTASSIUM [Concomitant]
     Active Substance: AMOXICILLIN\CLAVULANATE POTASSIUM
     Dosage: UNK UNK, BID (0.5 DAY)(START DATE: 18-MAY-2020)
     Route: 048
  33. AMOXICILLIN\CLAVULANATE POTASSIUM [Concomitant]
     Active Substance: AMOXICILLIN\CLAVULANATE POTASSIUM
     Dosage: UNK (0.33 DAY) (START DATE: 27-MAY-2020)
     Route: 048
  34. PIPERACILLIN SODIUM\TAZOBACTAM SODIUM [Concomitant]
     Active Substance: PIPERACILLIN SODIUM\TAZOBACTAM SODIUM
     Dosage: UNK UNK, QID (0.25DAY)(START DATE: 18-MAY-2020)
     Route: 042
     Dates: end: 20200521
  35. PIPERACILLIN SODIUM\TAZOBACTAM SODIUM [Concomitant]
     Active Substance: PIPERACILLIN SODIUM\TAZOBACTAM SODIUM
     Dosage: UNK
     Route: 065
     Dates: start: 20200607, end: 20200608
  36. TINZAPARIN [Concomitant]
     Active Substance: TINZAPARIN
     Indication: Prophylaxis
     Dosage: UNK UNK, QD (START DATE: 18-MAY-2020)
     Route: 065
     Dates: end: 20200608
  37. ONDANSETRON [Concomitant]
     Active Substance: ONDANSETRON
     Dosage: 8 MILLIGRAM
     Route: 065
     Dates: start: 20191216, end: 20191216
  38. DOCUSATE SODIUM [Concomitant]
     Active Substance: DOCUSATE SODIUM
     Dosage: UNK (START DATE: 26-MAY-2020)
     Route: 065
     Dates: end: 20200528
  39. VORICONAZOLE [Concomitant]
     Active Substance: VORICONAZOLE
     Dosage: UNK, BID (START DATE: 29-MAY-2020)
     Route: 065
     Dates: end: 20200530
  40. VORICONAZOLE [Concomitant]
     Active Substance: VORICONAZOLE
     Dosage: UNK, BID
     Route: 065
     Dates: start: 20200531, end: 20200608
  41. MAGNASPARTATE [Concomitant]
     Dosage: UNK, BID (START DATE: 26-MAY-2020)
     Route: 065
     Dates: end: 20200528
  42. MAGNASPARTATE [Concomitant]
     Dosage: UNK, BID
     Route: 065
     Dates: start: 20200603, end: 20200605
  43. SENNA [Concomitant]
     Active Substance: SENNA LEAF\SENNOSIDES\SENNOSIDES A AND B
     Dosage: UNK, QD (START DATE: 27-MAY-2020)
     Route: 065
     Dates: end: 20200607
  44. RANITIDINE [Concomitant]
     Active Substance: RANITIDINE
     Indication: Prophylaxis
     Dosage: UNK, QD (START DATE: 29-MAY-2020)
     Route: 065
     Dates: end: 20200608
  45. FUROSEMIDE [Concomitant]
     Active Substance: FUROSEMIDE
     Dosage: UNK, QD (START DATE: 03-JUN-2020)
     Route: 065
     Dates: end: 20200603
  46. MOXIFLOXACIN [Concomitant]
     Active Substance: MOXIFLOXACIN
     Dosage: UNK, QD
     Route: 065
     Dates: start: 20200526, end: 20200601
  47. MAGNESIUM SULFATE [Concomitant]
     Active Substance: MAGNESIUM SULFATE
     Dosage: UNK (START DATE: 18-MAY-2020)
     Route: 065
     Dates: end: 20200519
  48. DEXAMETHASONE [Concomitant]
     Active Substance: DEXAMETHASONE
     Dosage: UNK, BID (START DATE: 28-MAY-2020)
     Route: 065
     Dates: end: 20200531
  49. DEXAMETHASONE [Concomitant]
     Active Substance: DEXAMETHASONE
     Dosage: UNK, BID (START DATE: 01-JUN-2020)
     Route: 065
     Dates: end: 20200603
  50. ALBUTEROL [Concomitant]
     Active Substance: ALBUTEROL
     Dosage: UNK (START DATE: 18-MAY-2020)
     Route: 065
     Dates: end: 20200518
  51. GLYCERIN [Concomitant]
     Active Substance: GLYCERIN
     Dosage: UNK (START DATE: 29-MAY-2020)
     Route: 065
     Dates: end: 20200529
  52. LIDOCAINE [Concomitant]
     Active Substance: LIDOCAINE
     Dosage: UNK, BID (START DATE: 29-MAY-2020)
     Route: 065
     Dates: end: 20200607
  53. DEMECLOCYCLINE [Concomitant]
     Active Substance: DEMECLOCYCLINE
     Dosage: UNK (START DATE: 03-JUN-2020)
     Route: 065
     Dates: end: 20200608
  54. ALFENTANIL [Concomitant]
     Active Substance: ALFENTANIL
     Dosage: UNK, QD (START DATE: 27-MAY-2020)
     Route: 065
     Dates: end: 20200608
  55. MIDAZOLAM [Concomitant]
     Active Substance: MIDAZOLAM
     Indication: Prophylaxis
     Dosage: UNK, QD (START DATE: 08-JUN-2020)
     Route: 065
     Dates: end: 20200609
  56. OXYCODONE [Concomitant]
     Active Substance: OXYCODONE
     Dosage: UNK, QD (START DATE: 25-MAY-2020)
     Route: 065
     Dates: end: 20200607
  57. GLYCOPYRRONIUM [Concomitant]
     Active Substance: GLYCOPYRRONIUM
     Indication: Prophylaxis
     Dosage: UNK (START DATE 08-JUN-2020)
     Route: 065
     Dates: end: 20200609
  58. SODIUM CHLORIDE [Concomitant]
     Active Substance: SODIUM CHLORIDE
     Dosage: UNK (DURATION OF DRUG ADMINISTRATION: 1DAYS)(START DATE: 18-MAY-2020)
     Route: 065
     Dates: end: 20200518
  59. SODIUM CHLORIDE [Concomitant]
     Active Substance: SODIUM CHLORIDE
     Dosage: UNK
     Route: 065
     Dates: start: 20200526, end: 20200607
  60. CLARITHROMYCIN [Concomitant]
     Active Substance: CLARITHROMYCIN
     Dosage: UNK, QD (START DATE: 25-MAY-2020)
     Route: 065
     Dates: end: 20200526

REACTIONS (8)
  - Pyrexia [Recovered/Resolved]
  - Neuropathy peripheral [Recovered/Resolved]
  - Decubitus ulcer [Not Recovered/Not Resolved]
  - Dysuria [Recovered/Resolved]
  - Hypomagnesaemia [Recovered/Resolved]
  - Diarrhoea [Recovered/Resolved]
  - Abdominal pain [Recovered/Resolved]
  - Stomatitis [Recovered/Resolved]

NARRATIVE: CASE EVENT DATE: 20191216
